FAERS Safety Report 23668632 (Version 2)
Quarter: 2024Q1

REPORT INFORMATION
  Report Type: Spontaneous
  Country: US (occurrence: US)
  Receive Date: 20240325
  Receipt Date: 20240327
  Transmission Date: 20240410
  Serious: No
  Sender: FDA-Public Use
  Company Number: US-PFIZER INC-202400068919

PATIENT
  Age: 60 Year
  Sex: Male

DRUGS (3)
  1. VELSIPITY [Interacting]
     Active Substance: ETRASIMOD ARGININE
     Dosage: 2 MG
  2. METOPROLOL TARTRATE [Interacting]
     Active Substance: METOPROLOL TARTRATE
     Dosage: UNK
  3. PLAVIX [Interacting]
     Active Substance: CLOPIDOGREL BISULFATE
     Dosage: UNK

REACTIONS (1)
  - Drug interaction [Unknown]
